FAERS Safety Report 15999400 (Version 1)
Quarter: 2019Q1

REPORT INFORMATION
  Report Type: Spontaneous
  Country: US (occurrence: US)
  Receive Date: 20190222
  Receipt Date: 20190222
  Transmission Date: 20190418
  Serious: No
  Sender: FDA-Public Use
  Company Number: None

PATIENT

DRUGS (1)
  1. BCG [Suspect]
     Active Substance: BCG VACCINE

REACTIONS (3)
  - Product label confusion [None]
  - Wrong product administered [None]
  - Incorrect route of product administration [None]

NARRATIVE: CASE EVENT DATE: 20190222
